FAERS Safety Report 8618545-7 (Version None)
Quarter: 2012Q3

REPORT INFORMATION
  Report Type: 
  Country: None (occurrence: None)
  Receive Date: 20120824
  Receipt Date: 20120820
  Transmission Date: 20120928
  Serious: Yes (Other)
  Sender: FDA-Public Use
  Company Number: US-PFIZER INC-2012203803

PATIENT
  Age: 58 Year
  Sex: Female

DRUGS (1)
  1. ALTACE [Suspect]
     Dosage: UNK

REACTIONS (4)
  - SWOLLEN TONGUE [None]
  - DYSPNOEA [None]
  - DYSGEUSIA [None]
  - ANAPHYLACTIC SHOCK [None]
